FAERS Safety Report 21253969 (Version 1)
Quarter: 2022Q3

REPORT INFORMATION
  Report Type: Spontaneous
  Country: DE (occurrence: None)
  Receive Date: 20220825
  Receipt Date: 20220825
  Transmission Date: 20221027
  Serious: Yes (Other)
  Sender: FDA-Public Use
  Company Number: 2022A292107

PATIENT
  Sex: Female

DRUGS (5)
  1. FULVESTRANT [Suspect]
     Active Substance: FULVESTRANT
     Indication: Neoplasm malignant
     Route: 030
     Dates: start: 201811
  2. ZOLADEX [Suspect]
     Active Substance: GOSERELIN ACETATE
     Indication: Neoplasm malignant
     Route: 058
     Dates: start: 201806
  3. DENOSUMAB [Concomitant]
     Active Substance: DENOSUMAB
     Route: 065
     Dates: start: 201806
  4. EPIRUBICIN [Concomitant]
     Active Substance: EPIRUBICIN
     Route: 065
     Dates: start: 201901
  5. TALAZOPARIB [Concomitant]
     Active Substance: TALAZOPARIB
     Route: 065
     Dates: start: 20200713

REACTIONS (8)
  - Malignant neoplasm progression [Unknown]
  - Bone disorder [Unknown]
  - Fracture [Unknown]
  - Tumour marker increased [Recovering/Resolving]
  - Metastases to liver [Unknown]
  - Lymphadenopathy [Recovered/Resolved]
  - Bone marrow infiltration [Unknown]
  - Metastases to bone [Recovered/Resolved]

NARRATIVE: CASE EVENT DATE: 20190301
